FAERS Safety Report 14151547 (Version 1)
Quarter: 2017Q4

REPORT INFORMATION
  Report Type: Spontaneous
  Country: US (occurrence: None)
  Receive Date: 20171101
  Receipt Date: 20171101
  Transmission Date: 20180321
  Serious: Yes (Life-Threatening, Hospitalization)
  Sender: FDA-Public Use
  Company Number: None

PATIENT
  Age: 48 Year
  Sex: Male

DRUGS (2)
  1. FENFLURAMINE [Suspect]
     Active Substance: FENFLURAMINE
     Indication: CORONARY ARTERIAL STENT INSERTION
     Dates: start: 20170912, end: 20170912
  2. PHENTERMINE. [Suspect]
     Active Substance: PHENTERMINE
     Indication: CORONARY ARTERIAL STENT INSERTION
     Dates: start: 20170912, end: 20170912

REACTIONS (3)
  - Myocardial necrosis marker increased [None]
  - Angina pectoris [None]
  - Coronary artery disease [None]

NARRATIVE: CASE EVENT DATE: 20170912
